FAERS Safety Report 4710530-0 (Version None)
Quarter: 2005Q3

REPORT INFORMATION
  Report Type: 
  Country: None (occurrence: None)
  Receive Date: 20050707
  Receipt Date: 20050627
  Transmission Date: 20060218
  Serious: Yes (Other)
  Sender: FDA-Public Use
  Company Number: 2005093338

PATIENT
  Age: 67 Year
  Sex: Female

DRUGS (5)
  1. NORVASC [Suspect]
     Indication: HYPERTENSION
     Dosage: 10 MG (10 MG, 1 IN 1 D), ORAL
     Route: 048
     Dates: start: 20050624, end: 20050625
  2. HYZAAR [Concomitant]
  3. RYTMONORM (PROPRAFENONE HYDROCHLORIDE) [Concomitant]
  4. LEXOTAN (BROMAZEPAM) [Concomitant]
  5. MOTILIUM-M (DOMEPERIDONE MALEATE) [Concomitant]

REACTIONS (6)
  - ARRHYTHMIA [None]
  - BLOOD PRESSURE FLUCTUATION [None]
  - BLOOD PRESSURE INCREASED [None]
  - DIZZINESS [None]
  - SOMNOLENCE [None]
  - TACHYCARDIA [None]
